FAERS Safety Report 4387444-1 (Version None)
Quarter: 2004Q2

REPORT INFORMATION
  Report Type: 
  Country: None (occurrence: None)
  Receive Date: 20040630
  Receipt Date: 20040506
  Transmission Date: 20050107
  Serious: Yes (Other)
  Sender: FDA-Public Use
  Company Number: PHBS2004JP06123

PATIENT
  Age: 55 Year
  Sex: Male

DRUGS (11)
  1. SIMULECT [Suspect]
     Indication: RENAL TRANSPLANT
     Dosage: 20 MG, ONCE/SINGLE
     Route: 042
     Dates: start: 20040305, end: 20040305
  2. SIMULECT [Suspect]
     Dosage: 20 MG, ONCE/SINGLE
     Route: 042
     Dates: start: 20040309, end: 20040309
  3. SEVOFLURANE [Concomitant]
     Dosage: 280 ML/D
     Dates: start: 20040305, end: 20040305
  4. HANP [Concomitant]
     Dosage: 3000 MG/D
     Route: 042
     Dates: start: 20040305, end: 20040309
  5. PROSTANDIN [Concomitant]
     Dosage: 500 MG/D
     Route: 042
     Dates: start: 20040305, end: 20040307
  6. PROGRAF [Concomitant]
     Dosage: 1.25 MG/D
     Route: 042
     Dates: start: 20040305
  7. MILRILA [Concomitant]
     Dosage: 10 MG/D
     Route: 042
     Dates: start: 20040305, end: 20040308
  8. MIDAZOLAM HCL [Concomitant]
     Dosage: 5 MG/D
     Route: 042
     Dates: start: 20040305
  9. VECURONIUM BROMIDE [Concomitant]
     Dosage: 16 MG/D
     Route: 042
     Dates: start: 20040305
  10. FENTANEST [Concomitant]
     Dosage: 200 MG/D
     Route: 042
     Dates: start: 20040305
  11. SOLU-MEDROL [Concomitant]
     Dosage: 500 MG/D
     Route: 042
     Dates: start: 20040305

REACTIONS (1)
  - BLOOD AMYLASE INCREASED [None]
